FAERS Safety Report 5218968-2 (Version None)
Quarter: 2007Q1

REPORT INFORMATION
  Report Type: 
  Country: None (occurrence: None)
  Receive Date: 20070122
  Receipt Date: 20070112
  Transmission Date: 20070707
  Serious: No
  Sender: FDA-Public Use
  Company Number: 2006-03232

PATIENT
  Sex: Female

DRUGS (2)
  1. VELCADE [Suspect]
     Indication: MULTIPLE MYELOMA
  2. THALIDOMIDE [Suspect]
     Dosage: SEE IMAGE
     Route: 048
     Dates: start: 20030801

REACTIONS (2)
  - NO ADVERSE EFFECT [None]
  - TREATMENT NONCOMPLIANCE [None]
